FAERS Safety Report 10103239 (Version 3)
Quarter: 2014Q2

REPORT INFORMATION
  Report Type: Spontaneous
  Country: JP (occurrence: JP)
  Receive Date: 20140424
  Receipt Date: 20140624
  Transmission Date: 20141212
  Serious: Yes (Death, Life-Threatening, Hospitalization, Other)
  Sender: FDA-Public Use
  Company Number: JP-GE HEALTHCARE MEDICAL DIAGNOSTICS-OMPQ-PR-1404S-0407

PATIENT
  Age: 94 Year
  Sex: Male
  Weight: 41.1 kg

DRUGS (10)
  1. OMNIPAQUE [Suspect]
     Indication: PRODUCT USED FOR UNKNOWN INDICATION
     Dosage: DOSE NOT REPORTED
     Route: 042
     Dates: start: 20140328, end: 20140328
  2. OMNIPAQUE [Suspect]
     Indication: DIAGNOSTIC PROCEDURE
  3. CONIEL [Concomitant]
     Dates: start: 20070502
  4. THEODUR [Concomitant]
     Dates: start: 20070502
  5. SENNOSIDE [Concomitant]
     Dates: start: 20120704
  6. HALCION [Concomitant]
     Dates: start: 20121219
  7. DEPAS [Concomitant]
     Dates: start: 20130605
  8. TELEMINSOFT [Concomitant]
     Dates: start: 20130828
  9. MOHRUS [Concomitant]
     Dates: start: 20100804
  10. HIRUDOID [Concomitant]
     Dates: start: 20120926

REACTIONS (5)
  - Renal failure acute [Recovered/Resolved]
  - Loss of consciousness [Recovered/Resolved]
  - Sepsis [Fatal]
  - Pneumonia [Fatal]
  - Hypercapnia [Unknown]
